FAERS Safety Report 13850384 (Version 3)
Quarter: 2017Q3

REPORT INFORMATION
  Report Type: Spontaneous
  Country: US (occurrence: US)
  Receive Date: 20170809
  Receipt Date: 20170925
  Transmission Date: 20171127
  Serious: Yes (Hospitalization, Other)
  Sender: FDA-Public Use
  Company Number: US-PFIZER INC-2017341455

PATIENT
  Age: 59 Year
  Sex: Female
  Weight: 58.97 kg

DRUGS (10)
  1. VIMPAT [Concomitant]
     Active Substance: LACOSAMIDE
     Indication: EPILEPSY
     Dosage: 200 MG, 2X/DAY
     Route: 048
  2. DILANTIN [Suspect]
     Active Substance: PHENYTOIN
     Indication: EPILEPSY
     Dosage: 100 MG, 2X/DAY ON MONDAY, WEDNESDAY, FRIDAY, SATURDAY, AND SUNDAY
     Route: 048
  3. LANTUS [Suspect]
     Active Substance: INSULIN GLARGINE
     Dosage: 13 IU, DAILY
  4. NOVOLOG [Suspect]
     Active Substance: INSULIN ASPART
     Indication: TYPE 1 DIABETES MELLITUS
     Dosage: 7 IU, UNK  (WENT DOWN FROM THERE)
     Dates: start: 201707, end: 201708
  5. KEPPRA [Concomitant]
     Active Substance: LEVETIRACETAM
     Indication: EPILEPSY
     Dosage: 1500 MG, 2X/DAY
     Route: 048
  6. DILANTIN [Suspect]
     Active Substance: PHENYTOIN
     Dosage: 100MG IN THE MORNING AND 200MG AT NIGHT ON TUESDAY AND THURSDAYS
     Route: 048
  7. KEPPRA XR [Suspect]
     Active Substance: LEVETIRACETAM
     Dosage: 750 MG, UNK
  8. CITALOPRAM [Concomitant]
     Active Substance: CITALOPRAM HYDROBROMIDE
     Indication: DEPRESSION
     Dosage: 40 MG, 1X/DAY (IN THE MORNING)
  9. DILANTIN [Suspect]
     Active Substance: PHENYTOIN
     Dosage: 100MG IN THE MORNING AND 130MG AT NIGHT 7 DAYS A WEEK
     Route: 048
  10. LANTUS [Suspect]
     Active Substance: INSULIN GLARGINE
     Indication: TYPE 1 DIABETES MELLITUS
     Dosage: 22 IU, DAILY
     Dates: start: 201707

REACTIONS (6)
  - Partial seizures [Recovered/Resolved]
  - Muscle spasms [Unknown]
  - Sleep disorder [Unknown]
  - Diabetic ketoacidosis [Recovered/Resolved]
  - Type 1 diabetes mellitus [Not Recovered/Not Resolved]
  - Insomnia [Unknown]

NARRATIVE: CASE EVENT DATE: 201707
